FAERS Safety Report 10374790 (Version 1)
Quarter: 2014Q3

REPORT INFORMATION
  Report Type: Spontaneous
  Country: US (occurrence: US)
  Receive Date: 20140811
  Receipt Date: 20140811
  Transmission Date: 20150326
  Serious: Yes (Life-Threatening, Hospitalization)
  Sender: FDA-Public Use
  Company Number: US-BAYER-2014-115537

PATIENT
  Sex: Male

DRUGS (1)
  1. ALEVE [Suspect]
     Active Substance: NAPROXEN SODIUM
     Indication: BACK PAIN
     Dosage: UNK, QD
     Route: 048
     Dates: start: 20140326

REACTIONS (2)
  - Intestinal perforation [Unknown]
  - Diverticulum [Unknown]

NARRATIVE: CASE EVENT DATE: 201403
